FAERS Safety Report 16575462 (Version 5)
Quarter: 2019Q4

REPORT INFORMATION
  Report Type: Spontaneous
  Country: US (occurrence: US)
  Receive Date: 20190716
  Receipt Date: 20191229
  Transmission Date: 20200122
  Serious: No
  Sender: FDA-Public Use
  Company Number: US-BIOGEN-2019BI00758297

PATIENT
  Sex: Female

DRUGS (2)
  1. TYSABRI [Suspect]
     Active Substance: NATALIZUMAB
     Indication: MULTIPLE SCLEROSIS
     Route: 065
     Dates: start: 20120606, end: 20131119
  2. TYSABRI [Suspect]
     Active Substance: NATALIZUMAB
     Route: 065
     Dates: start: 20190830

REACTIONS (8)
  - Fall [Recovered/Resolved]
  - Visual impairment [Unknown]
  - Mouth ulceration [Unknown]
  - Gait disturbance [Unknown]
  - Mental impairment [Unknown]
  - Gait inability [Unknown]
  - Product dose omission [Unknown]
  - Memory impairment [Unknown]
